FAERS Safety Report 8921016 (Version 1)
Quarter: 2012Q4

REPORT INFORMATION
  Report Type: 
  Country: US (occurrence: US)
  Receive Date: 20121122
  Receipt Date: 20121122
  Transmission Date: 20130627
  Serious: Yes (Life-Threatening)
  Sender: FDA-Public Use
  Company Number: US-BRISTOL-MYERS SQUIBB COMPANY-17122466

PATIENT
  Age: 65 Year
  Sex: Female

DRUGS (2)
  1. WARFARIN SODIUM [Suspect]
     Indication: PULMONARY EMBOLISM
  2. ENOXAPARIN [Suspect]
     Indication: PULMONARY EMBOLISM

REACTIONS (3)
  - Abdominal wall haematoma [Unknown]
  - Ileal perforation [Unknown]
  - Large intestine perforation [Unknown]
